FAERS Safety Report 10238560 (Version 1)
Quarter: 2014Q2

REPORT INFORMATION
  Report Type: Spontaneous
  Country: US (occurrence: US)
  Receive Date: 20140616
  Receipt Date: 20140616
  Transmission Date: 20141212
  Serious: Yes (Death, Other)
  Sender: FDA-Public Use
  Company Number: US-PFIZER INC-2014162583

PATIENT
  Age: 87 Year
  Sex: Female
  Weight: 86.62 kg

DRUGS (3)
  1. LYRICA [Suspect]
     Indication: NEUROPATHY PERIPHERAL
     Dosage: 150 MG, 3X/DAY
  2. LORTAB [Concomitant]
     Indication: PAIN
     Dosage: 10 MG, 3X/DAY
  3. LISINOPRIL [Concomitant]
     Indication: HYPERTENSION
     Dosage: 10 MG, DAILY

REACTIONS (1)
  - Cardiac failure congestive [Fatal]
